FAERS Safety Report 18960382 (Version 3)
Quarter: 2021Q3

REPORT INFORMATION
  Report Type: Spontaneous
  Country: US (occurrence: US)
  Receive Date: 20210302
  Receipt Date: 20210929
  Transmission Date: 20211014
  Serious: No
  Sender: FDA-Public Use
  Company Number: US-PFIZER INC-2021210384

PATIENT
  Age: 70 Year
  Sex: Female
  Weight: 92.53 kg

DRUGS (4)
  1. LISINOPRIL. [Concomitant]
     Active Substance: LISINOPRIL
     Indication: HYPERTENSION
     Dosage: 2.5 MG, DAILY
     Route: 048
  2. PRISTIQ EXTENDED?RELEASE [Suspect]
     Active Substance: DESVENLAFAXINE SUCCINATE
     Indication: DEPRESSION
     Dosage: 50 MG, 1X/DAY
     Route: 048
  3. LORAZEPAM. [Concomitant]
     Active Substance: LORAZEPAM
     Indication: SEIZURE
     Dosage: 0.5 AS NEEDED (QOD)
  4. BUPROPION. [Concomitant]
     Active Substance: BUPROPION
     Dosage: 180 DAILY
     Route: 048

REACTIONS (5)
  - Emotional distress [Unknown]
  - Frustration tolerance decreased [Unknown]
  - Screaming [Unknown]
  - Feeling abnormal [Unknown]
  - Depression [Unknown]
